FAERS Safety Report 7935026-4 (Version None)
Quarter: 2011Q4

REPORT INFORMATION
  Report Type: 
  Country: None (occurrence: None)
  Receive Date: 20111122
  Receipt Date: 20111114
  Transmission Date: 20120403
  Serious: Yes (Hospitalization)
  Sender: FDA-Public Use
  Company Number: CA-ASTRAZENECA-2011SE68903

PATIENT
  Age: 55 Year
  Sex: Male
  Weight: 72.6 kg

DRUGS (2)
  1. ACCOLATE [Suspect]
     Route: 048
  2. ATACAND HCT [Suspect]
     Dosage: 1 DF DAILY
     Route: 048

REACTIONS (3)
  - ASTHMA [None]
  - INFLUENZA [None]
  - INFECTION [None]
